FAERS Safety Report 10969824 (Version 1)
Quarter: 2015Q1

REPORT INFORMATION
  Report Type: Spontaneous
  Country: US (occurrence: US)
  Receive Date: 20150331
  Receipt Date: 20150331
  Transmission Date: 20150721
  Serious: No
  Sender: FDA-Public Use
  Company Number: US-PFIZER INC-2015109866

PATIENT
  Age: 69 Year
  Sex: Female

DRUGS (12)
  1. GLUCOTROL XL [Suspect]
     Active Substance: GLIPIZIDE
  2. ACTOS [Suspect]
     Active Substance: PIOGLITAZONE HYDROCHLORIDE
  3. CRESTOR [Suspect]
     Active Substance: ROSUVASTATIN CALCIUM
  4. KEFLEX [Suspect]
     Active Substance: CEPHALEXIN
  5. IBUPROFEN. [Suspect]
     Active Substance: IBUPROFEN
  6. LEVAQUIN [Suspect]
     Active Substance: LEVOFLOXACIN
  7. MOBIC [Suspect]
     Active Substance: MELOXICAM
  8. SYMBICORT [Suspect]
     Active Substance: BUDESONIDE\FORMOTEROL FUMARATE DIHYDRATE
  9. MACRODANTIN [Suspect]
     Active Substance: NITROFURANTOIN
  10. PREVACID [Suspect]
     Active Substance: LANSOPRAZOLE
  11. FORTAMET [Suspect]
     Active Substance: METFORMIN HYDROCHLORIDE
  12. PRILOSEC [Suspect]
     Active Substance: OMEPRAZOLE MAGNESIUM

REACTIONS (1)
  - Drug hypersensitivity [Unknown]
